FAERS Safety Report 7190760-1 (Version None)
Quarter: 2010Q4

REPORT INFORMATION
  Report Type: 
  Country: None (occurrence: None)
  Receive Date: 20101223
  Receipt Date: 20101214
  Transmission Date: 20110411
  Serious: Yes (Hospitalization, Other)
  Sender: FDA-Public Use
  Company Number: US-PFIZER INC-US-WYE-H12005809

PATIENT

DRUGS (8)
  1. ETANERCEPT [Interacting]
     Indication: PSORIASIS
     Dosage: 50.0 MG, 2X/WEEK
     Route: 065
     Dates: start: 20090601, end: 20091001
  2. CELECOXIB [Suspect]
  3. CALCIPOTRIOL [Concomitant]
  4. CLOBETASOL [Concomitant]
     Route: 061
  5. GABAPENTIN [Concomitant]
  6. LEVOTHYROXINE SODIUM [Concomitant]
  7. LORATADINE [Concomitant]
  8. MULTI-VITAMINS [Concomitant]

REACTIONS (2)
  - DRUG INTERACTION [None]
  - PULMONARY EMBOLISM [None]
